FAERS Safety Report 6638150-1 (Version None)
Quarter: 2010Q1

REPORT INFORMATION
  Report Type: 
  Country: None (occurrence: None)
  Receive Date: 20100317
  Receipt Date: 20100303
  Transmission Date: 20100710
  Serious: Yes (Other)
  Sender: FDA-Public Use
  Company Number: BE-CELGENEUS-013-20785-10030466

PATIENT

DRUGS (2)
  1. THALOMID [Suspect]
     Route: 048
  2. DEXAMETHASONE [Concomitant]
     Route: 065

REACTIONS (1)
  - TUBULOINTERSTITIAL NEPHRITIS [None]
